FAERS Safety Report 7092472-1 (Version None)
Quarter: 2010Q4

REPORT INFORMATION
  Report Type: 
  Country: None (occurrence: None)
  Receive Date: 20101108
  Receipt Date: 20101108
  Transmission Date: 20110411
  Serious: Yes (Hospitalization)
  Sender: FDA-Public Use
  Company Number: None

PATIENT
  Age: 53 Year
  Sex: Female
  Weight: 86.1834 kg

DRUGS (1)
  1. GAMUNEX 10 GRAMS TALECRIS [Suspect]
     Indication: POLYNEUROPATHY IDIOPATHIC PROGRESSIVE
     Dosage: 30 GRAMS EVERY TWO WEEKS IV DRIP
     Route: 041
     Dates: start: 20100406, end: 20101021

REACTIONS (2)
  - CHEST DISCOMFORT [None]
  - HEADACHE [None]
